FAERS Safety Report 16557212 (Version 3)
Quarter: 2019Q3

REPORT INFORMATION
  Report Type: Report from Study
  Country: None (occurrence: PT)
  Receive Date: 20190711
  Receipt Date: 20190823
  Transmission Date: 20191004
  Serious: Yes (Hospitalization, Other)
  Sender: FDA-Public Use
  Company Number: PT-ABBVIE-19K-130-2847606-00

PATIENT
  Sex: Female

DRUGS (4)
  1. LEPICORTINOLO [Concomitant]
     Active Substance: PREDNISOLONE
     Indication: RHEUMATOID ARTHRITIS
     Dosage: 1 TABLET IN THE MORNING 1 TABLET AT NIGHT?DRUG START DATE -  BEFORE HUMIRA
     Route: 048
  2. HUMIRA [Suspect]
     Active Substance: ADALIMUMAB
     Indication: RHEUMATOID ARTHRITIS
     Route: 058
     Dates: start: 20190304, end: 201906
  3. TRAMAL [Concomitant]
     Active Substance: TRAMADOL
     Indication: RHEUMATOID ARTHRITIS
     Dosage: FREQUENCY- 1 TABLET AT NIGHT IN SOS?START DATE- BEFORE HUMIRA
     Route: 048
  4. HUMIRA [Suspect]
     Active Substance: ADALIMUMAB
     Route: 058
     Dates: start: 20190819

REACTIONS (2)
  - Bone atrophy [Unknown]
  - Tendon injury [Recovered/Resolved]

NARRATIVE: CASE EVENT DATE: 2019
